FAERS Safety Report 20037094 (Version 11)
Quarter: 2022Q3

REPORT INFORMATION
  Report Type: Report from Study
  Country: US (occurrence: US)
  Receive Date: 20211105
  Receipt Date: 20220712
  Transmission Date: 20221026
  Serious: Yes (Hospitalization, Other)
  Sender: FDA-Public Use
  Company Number: US-NOVARTISTESTPH-NVSC2021US252717

PATIENT
  Sex: Female

DRUGS (2)
  1. ENTRESTO [Suspect]
     Active Substance: SACUBITRIL\VALSARTAN
     Indication: Product used for unknown indication
     Dosage: 1 DF, BID
     Route: 048
     Dates: start: 2021
  2. LISINOPRIL [Concomitant]
     Active Substance: LISINOPRIL
     Indication: Product used for unknown indication
     Dosage: UNK
     Route: 065

REACTIONS (18)
  - Dehydration [Unknown]
  - Renal impairment [Unknown]
  - Memory impairment [Unknown]
  - Blood potassium increased [Unknown]
  - Visual impairment [Not Recovered/Not Resolved]
  - Thinking abnormal [Unknown]
  - Confusional state [Unknown]
  - Wound [Unknown]
  - Swelling [Recovering/Resolving]
  - Wound infection [Unknown]
  - Anxiety [Unknown]
  - Illness [Unknown]
  - Movement disorder [Unknown]
  - Joint swelling [Unknown]
  - Dysstasia [Unknown]
  - Feeling abnormal [Unknown]
  - Blood glucose increased [Unknown]
  - Accidental exposure to product [Unknown]

NARRATIVE: CASE EVENT DATE: 20210101
